FAERS Safety Report 19631760 (Version 1)
Quarter: 2021Q3

REPORT INFORMATION
  Report Type: Spontaneous
  Country: US (occurrence: US)
  Receive Date: 20210728
  Receipt Date: 20210728
  Transmission Date: 20211014
  Serious: Yes (Other)
  Sender: FDA-Public Use
  Company Number: US-PURDUE PHARMA-USA-2021-0279342

PATIENT
  Sex: Female

DRUGS (1)
  1. COLACE 2 IN 1 [Suspect]
     Active Substance: DOCUSATE SODIUM\SENNOSIDES
     Indication: PRODUCT USED FOR UNKNOWN INDICATION
     Dosage: 1 TABLET, SINGLE
     Route: 048

REACTIONS (3)
  - Haematochezia [Unknown]
  - Gastrointestinal motility disorder [Unknown]
  - Dyschezia [Unknown]
